FAERS Safety Report 4853357-1 (Version None)
Quarter: 2005Q4

REPORT INFORMATION
  Report Type: 
  Country: None (occurrence: None)
  Receive Date: 20051214
  Receipt Date: 20051005
  Transmission Date: 20060501
  Serious: Yes (Hospitalization, Disabling)
  Sender: FDA-Public Use
  Company Number: US-MERCK-0510USA04550

PATIENT
  Age: 45 Year
  Sex: Male
  Weight: 68 kg

DRUGS (1)
  1. VIOXX [Suspect]
     Indication: PROPHYLAXIS
     Route: 048

REACTIONS (4)
  - EXTRASYSTOLES [None]
  - FALL [None]
  - GASTROINTESTINAL DISORDER [None]
  - PALPITATIONS [None]
